FAERS Safety Report 5113760-1 (Version None)
Quarter: 2006Q3

REPORT INFORMATION
  Report Type: 
  Country: None (occurrence: None)
  Receive Date: 20060920
  Receipt Date: 20060911
  Transmission Date: 20061208
  Serious: Yes (Hospitalization)
  Sender: FDA-Public Use
  Company Number: S06-CAN-02087-01

PATIENT
  Sex: Female

DRUGS (2)
  1. TIAZAC XC(CILTIAZEM HYDROCHLORIDE) [Suspect]
  2. BETA BLOCKER (NOS) [Suspect]

REACTIONS (2)
  - BRADYCARDIA [None]
  - DRUG INTERACTION [None]
